FAERS Safety Report 18940423 (Version 1)
Quarter: 2021Q1

REPORT INFORMATION
  Report Type: Spontaneous
  Country: GB (occurrence: GB)
  Receive Date: 20210225
  Receipt Date: 20210225
  Transmission Date: 20210420
  Serious: Yes (Other)
  Sender: FDA-Public Use
  Company Number: GB-PFIZER INC-2021155264

PATIENT
  Age: 8 Year
  Sex: Male

DRUGS (3)
  1. PIPERACILLIN SODIUM [Concomitant]
     Active Substance: PIPERACILLIN SODIUM
     Indication: ILL-DEFINED DISORDER
     Dosage: UNK
  2. TAZOBACTAM [Concomitant]
     Active Substance: TAZOBACTAM
     Indication: ILL-DEFINED DISORDER
     Dosage: UNK
  3. VANCOMYCIN HCL [Suspect]
     Active Substance: VANCOMYCIN HYDROCHLORIDE
     Indication: PYREXIA
     Dosage: 670MG 6 HOURLY (MAX: 2700MG DAILY)
     Route: 042
     Dates: start: 20210210

REACTIONS (2)
  - Off label use [Unknown]
  - Red man syndrome [Recovering/Resolving]

NARRATIVE: CASE EVENT DATE: 20210210
